FAERS Safety Report 8190294-1 (Version None)
Quarter: 2012Q1

REPORT INFORMATION
  Report Type: 
  Country: None (occurrence: None)
  Receive Date: 20120307
  Receipt Date: 20120305
  Transmission Date: 20120608
  Serious: Yes (Death)
  Sender: FDA-Public Use
  Company Number: US-ELI_LILLY_AND_COMPANY-US201203001200

PATIENT
  Sex: Male

DRUGS (3)
  1. AVASTIN [Concomitant]
  2. ALIMTA [Suspect]
     Indication: LUNG NEOPLASM MALIGNANT
     Dosage: UNK
     Dates: start: 20111122, end: 20120103
  3. CARBOPLATIN [Concomitant]

REACTIONS (1)
  - DEATH [None]
